FAERS Safety Report 9239900 (Version 1)
Quarter: 2013Q2

REPORT INFORMATION
  Report Type: Spontaneous
  Country: FR (occurrence: FR)
  Receive Date: 20130418
  Receipt Date: 20130418
  Transmission Date: 20140414
  Serious: Yes (Other)
  Sender: FDA-Public Use
  Company Number: FR-009507513-1304FRA005248

PATIENT
  Age: 65 Year
  Sex: Female
  Weight: 53 kg

DRUGS (3)
  1. NOROXINE [Suspect]
     Indication: CYSTITIS
     Dosage: UNK
     Route: 048
     Dates: start: 201206, end: 2012
  2. NOROXINE [Suspect]
     Dosage: UNK
     Route: 048
     Dates: start: 2012, end: 2012
  3. NOROXINE [Suspect]
     Dosage: UNK
     Route: 048
     Dates: start: 2012, end: 201207

REACTIONS (5)
  - Bone graft [Unknown]
  - Hip surgery [Unknown]
  - Cartilage atrophy [Unknown]
  - Limb discomfort [Unknown]
  - Myalgia [Unknown]
